FAERS Safety Report 5488130-7 (Version None)
Quarter: 2007Q4

REPORT INFORMATION
  Report Type: 
  Country: None (occurrence: None)
  Receive Date: 20071001
  Receipt Date: 20061101
  Transmission Date: 20080405
  Serious: Yes (Hospitalization)
  Sender: FDA-Public Use
  Company Number: 200615289BWH

PATIENT
  Age: 9 Year
  Sex: Male
  Weight: 27 kg

DRUGS (14)
  1. CIPRO [Suspect]
     Indication: SPUTUM CULTURE POSITIVE
     Dosage: TID ORAL, BID, ORAL
     Route: 048
     Dates: start: 20051217, end: 20051230
  2. CIPRO [Suspect]
     Indication: SPUTUM CULTURE POSITIVE
     Dosage: TID ORAL, BID, ORAL
     Route: 048
     Dates: start: 20060823, end: 20060828
  3. CIPRO [Suspect]
     Indication: SPUTUM CULTURE POSITIVE
     Dosage: TID ORAL, BID, ORAL
     Route: 048
     Dates: start: 20060902, end: 20060903
  4. TOBI [Suspect]
     Indication: SPUTUM CULTURE POSITIVE
     Dosage: 300 MG, BID RESPIRATORY (INHALATION)
     Route: 055
     Dates: start: 20051217, end: 20060104
  5. TOBI [Suspect]
     Indication: SPUTUM CULTURE POSITIVE
     Dosage: 300 MG, BID RESPIRATORY (INHALATION)
     Route: 055
     Dates: start: 20060823, end: 20060919
  6. PULMOZYME [Concomitant]
  7. ALBUTEROL [Concomitant]
  8. MULTI-VITAMIN [Concomitant]
  9. ADVAIR DISKUS 100/50 [Concomitant]
  10. SPIRIVA [Concomitant]
  11. FLONASE [Concomitant]
  12. ZANTAC [Concomitant]
  13. IBUPROFEN TABLETS [Concomitant]
  14. SODIUM SUPPLEMENT [Concomitant]

REACTIONS (2)
  - ABDOMINAL PAIN [None]
  - VOMITING [None]
